FAERS Safety Report 13912821 (Version 1)
Quarter: 2017Q3

REPORT INFORMATION
  Report Type: Report from Study
  Country: US (occurrence: US)
  Receive Date: 20170828
  Receipt Date: 20170828
  Transmission Date: 20171127
  Serious: Yes (Disabling, Other)
  Sender: FDA-Public Use
  Company Number: US-GILEAD-2017-0290009

PATIENT
  Age: 58 Year
  Sex: Female

DRUGS (1)
  1. EMTRICITABINE/TENOFOVIR DISOPROXIL FUMARATE [Suspect]
     Active Substance: EMTRICITABINE\TENOFOVIR DISOPROXIL FUMARATE
     Indication: HIV INFECTION
     Dosage: 500 MG, UNK
     Route: 048
     Dates: start: 200506

REACTIONS (3)
  - Fall [Unknown]
  - Limb immobilisation [Not Recovered/Not Resolved]
  - Complex regional pain syndrome [Unknown]
